FAERS Safety Report 8219303-8 (Version None)
Quarter: 2012Q1

REPORT INFORMATION
  Report Type: 
  Country: None (occurrence: None)
  Receive Date: 20120319
  Receipt Date: 20120306
  Transmission Date: 20120608
  Serious: Yes (Life-Threatening, Hospitalization, Other)
  Sender: FDA-Public Use
  Company Number: DE-TEVA-326301GER

PATIENT
  Age: 79 Year
  Sex: Male
  Weight: 99 kg

DRUGS (10)
  1. FUROSEMIDE [Suspect]
     Route: 048
     Dates: start: 19950101, end: 20110318
  2. APROVEL, 300 MG, FILMTABL, SANOFI-AVENTIS [Concomitant]
     Indication: HYPERTENSION
     Dosage: 150 MILLIGRAM;
     Route: 048
     Dates: start: 19950101, end: 20110318
  3. EMSER, NASENSPRAY, SIEMENS [Concomitant]
     Dosage: 1 DOSAGE FORMS;
     Route: 045
     Dates: start: 20080101, end: 20110318
  4. ALLOPURINOL, 300 MG, TABL, NN [Concomitant]
     Indication: HYPERURICAEMIA
     Dosage: 300 MILLIGRAM;
     Route: 048
     Dates: start: 19950101
  5. AMITRIPTYLIN, 25 MG, TABL, NN [Concomitant]
     Indication: ANXIETY
     Route: 048
     Dates: start: 19990101, end: 20110318
  6. EMSER SALZ, PULVER, SIEMENS [Concomitant]
     Dosage: 1 DOSAGE FORMS;
     Route: 045
     Dates: start: 20080101, end: 20110318
  7. AMLODIPIN, 5 MG, TABL, NN [Concomitant]
     Indication: HYPERTENSION
     Dosage: 5 MILLIGRAM;
     Route: 048
     Dates: start: 19950101, end: 20110318
  8. COLDASTOP, NASENOL, DESITIN [Concomitant]
     Dosage: 2 GTT;
     Route: 045
     Dates: start: 20080101, end: 20110318
  9. ASS, 100 MG, TABL, RATIOPHARM [Concomitant]
     Dosage: 100 MILLIGRAM;
     Route: 048
     Dates: start: 19950101
  10. SIMVASTATIN, TABL, NN [Concomitant]
     Dosage: 1 DOSAGE FORMS;
     Route: 048
     Dates: start: 19850101, end: 20110318

REACTIONS (2)
  - DEHYDRATION [None]
  - RENAL FAILURE ACUTE [None]
